FAERS Safety Report 5803796-7 (Version None)
Quarter: 2008Q3

REPORT INFORMATION
  Report Type: 
  Country: None (occurrence: None)
  Receive Date: 20080708
  Receipt Date: 20080421
  Transmission Date: 20090109
  Serious: Yes (Other)
  Sender: FDA-Public Use
  Company Number: US-AMGEN-US275560

PATIENT
  Sex: Female

DRUGS (9)
  1. KINERET [Suspect]
     Indication: RHEUMATOID ARTHRITIS
     Route: 058
     Dates: start: 20031209, end: 20040501
  2. ENBREL [Suspect]
     Indication: RHEUMATOID ARTHRITIS
     Route: 058
     Dates: start: 20021010, end: 20030507
  3. COUMADIN [Concomitant]
     Route: 065
  4. AVANDIA [Concomitant]
     Route: 065
     Dates: end: 20050401
  5. AVAPRO [Concomitant]
     Route: 065
     Dates: start: 20030901
  6. MULTI-VITAMINS [Concomitant]
     Route: 065
     Dates: end: 20041001
  7. TUMS [Concomitant]
     Route: 065
     Dates: start: 20020401
  8. HUMULIN R [Concomitant]
     Route: 065
  9. MOBIC [Concomitant]
     Route: 065
     Dates: start: 20040115, end: 20040801

REACTIONS (1)
  - GRANULOCYTOPENIA [None]
